FAERS Safety Report 18002281 (Version 1)
Quarter: 2020Q3

REPORT INFORMATION
  Report Type: Spontaneous
  Country: JP (occurrence: JP)
  Receive Date: 20200710
  Receipt Date: 20200710
  Transmission Date: 20201103
  Serious: Yes (Hospitalization, Other)
  Sender: FDA-Public Use
  Company Number: JP-QUAGEN-2020QUALIT00053

PATIENT
  Age: 70 Year
  Sex: Female

DRUGS (4)
  1. BETAMETHASONE;CHLORPHENAMINE [Suspect]
     Active Substance: BETAMETHASONE\CHLORPHENIRAMINE MALEATE
     Indication: ERYTHEMA
  2. LYRICA [Suspect]
     Active Substance: PREGABALIN
     Indication: MONOPLEGIA
  3. CETIRIZINE HYDROCHLORIDE ORAL SOLUTION USP, 5MG/5ML [Suspect]
     Active Substance: CETIRIZINE HYDROCHLORIDE
     Indication: ERYTHEMA
     Route: 048
  4. PREDNISOLONE. [Interacting]
     Active Substance: PREDNISOLONE

REACTIONS (3)
  - Erythema multiforme [Recovering/Resolving]
  - Condition aggravated [Recovering/Resolving]
  - Product use in unapproved indication [Unknown]
